FAERS Safety Report 7208243-9 (Version None)
Quarter: 2010Q4

REPORT INFORMATION
  Report Type: 
  Country: None (occurrence: None)
  Receive Date: 20101222
  Receipt Date: 20101209
  Transmission Date: 20110411
  Serious: Yes (Other)
  Sender: FDA-Public Use
  Company Number: EUS-2010-01196

PATIENT
  Age: 18 Year
  Sex: Female

DRUGS (3)
  1. QUADRAMET (SAMARIUM (153 GM) LEXIDRONAM) [Suspect]
     Indication: BONE SARCOMA
     Dosage: 37 TO 51.8 MBQ/KG (1.0-1.4 MCI/KG)
  2. 18F-FDG (FLUDEOXYGLUCOSE (18F)) [Concomitant]
  3. CONTRAST MEDIA(CONTRAST MEDIA) [Concomitant]

REACTIONS (4)
  - DRUG INEFFECTIVE [None]
  - MALIGNANT NEOPLASM PROGRESSION [None]
  - OSTEOSARCOMA METASTATIC [None]
  - PANCYTOPENIA [None]
